FAERS Safety Report 24872250 (Version 3)
Quarter: 2025Q1

REPORT INFORMATION
  Report Type: Spontaneous
  Country: JP (occurrence: JP)
  Receive Date: 20250122
  Receipt Date: 20250212
  Transmission Date: 20250409
  Serious: No
  Sender: ASTELLAS
  Company Number: JP-ASTELLAS-2025-AER-002904

PATIENT
  Age: 71 Year
  Sex: Male

DRUGS (3)
  1. XTANDI [Suspect]
     Active Substance: ENZALUTAMIDE
     Indication: Hormone-refractory prostate cancer
     Route: 048
     Dates: start: 20240710
  2. XTANDI [Suspect]
     Active Substance: ENZALUTAMIDE
     Indication: Metastases to bone
     Route: 048
     Dates: start: 20240807
  3. FLUTAMIDE [Concomitant]
     Active Substance: FLUTAMIDE
     Indication: Hormone-refractory prostate cancer
     Route: 048
     Dates: start: 20231227

REACTIONS (1)
  - Malaise [Recovering/Resolving]

NARRATIVE: CASE EVENT DATE: 20240807
